FAERS Safety Report 20431430 (Version 3)
Quarter: 2022Q1

REPORT INFORMATION
  Report Type: Report from Study
  Country: FR (occurrence: FR)
  Receive Date: 20220204
  Receipt Date: 20220329
  Transmission Date: 20220423
  Serious: Yes (Death, Hospitalization, Other)
  Sender: FDA-Public Use
  Company Number: FR-GILEAD-2022-0568224

PATIENT
  Age: 46 Year
  Sex: Female
  Weight: 60 kg

DRUGS (2)
  1. SACITUZUMAB GOVITECAN [Suspect]
     Active Substance: SACITUZUMAB GOVITECAN
     Indication: Breast cancer metastatic
     Dosage: 10 MG/KG CYCLE 1 DAY1, CYCLE 1 DAY 8
     Route: 065
     Dates: start: 20211217, end: 20211224
  2. OXYCODONE HYDROCHLORIDE [Concomitant]
     Active Substance: OXYCODONE HYDROCHLORIDE
     Indication: Pain
     Dosage: UNK
     Dates: start: 20111129

REACTIONS (2)
  - Metastases to central nervous system [Fatal]
  - Pericardial effusion [Recovered/Resolved with Sequelae]

NARRATIVE: CASE EVENT DATE: 20211222
